FAERS Safety Report 9837405 (Version 4)
Quarter: 2014Q1

REPORT INFORMATION
  Report Type: Report from Study
  Country: BR (occurrence: BR)
  Receive Date: 20140123
  Receipt Date: 20140227
  Transmission Date: 20141002
  Serious: Yes (Hospitalization)
  Sender: FDA-Public Use
  Company Number: BR-ROCHE-1323498

PATIENT
  Age: 68 Year
  Sex: Female

DRUGS (23)
  1. PERTUZUMAB [Suspect]
     Indication: BREAST CANCER
     Dosage: LOADING DOSE
     Route: 042
     Dates: start: 20131018, end: 20131018
  2. PERTUZUMAB [Suspect]
     Dosage: MAINTENANCE DOSE, LAST DOSE PRIOR TO SAE: 10/DEC/2013
     Route: 042
     Dates: start: 20131119, end: 20131218
  3. PERTUZUMAB [Suspect]
     Route: 042
     Dates: start: 20140124
  4. TRASTUZUMAB [Suspect]
     Indication: BREAST CANCER
     Dosage: LOADING DOSE
     Route: 042
     Dates: start: 20131018, end: 20131018
  5. TRASTUZUMAB [Suspect]
     Dosage: MAINTAINENCE DOSE, LAST DOSE PRIOR TO SAE: 10/DEC/2013
     Route: 042
     Dates: start: 20131119, end: 20131218
  6. TRASTUZUMAB [Suspect]
     Route: 042
     Dates: start: 20140124
  7. DOCETAXEL [Suspect]
     Indication: BREAST CANCER
     Dosage: LAST DOSE PRIOR YO SAE:10/DEC/2013
     Route: 042
     Dates: start: 20131018, end: 20131218
  8. CEFEPIME [Concomitant]
     Route: 065
     Dates: start: 20131218, end: 20131222
  9. DIPYRONE [Concomitant]
     Route: 065
     Dates: start: 20131018, end: 20131018
  10. DIPYRONE [Concomitant]
     Route: 065
     Dates: start: 20131107, end: 20131107
  11. DIPYRONE [Concomitant]
     Route: 065
     Dates: start: 20131218, end: 20140108
  12. LOPERAMIDE [Concomitant]
     Route: 065
     Dates: start: 20131019, end: 20131023
  13. SEROQUEL [Concomitant]
     Route: 065
     Dates: start: 2007, end: 20140101
  14. SEROQUEL [Concomitant]
     Route: 065
     Dates: start: 201401
  15. SERTRALINA [Concomitant]
     Route: 065
     Dates: start: 2007
  16. MONTELUKAST [Concomitant]
     Route: 065
     Dates: start: 2001
  17. PANTOPRAZOLE [Concomitant]
     Route: 065
     Dates: start: 201301
  18. ROSUVASTATIN [Concomitant]
     Route: 065
     Dates: start: 201309
  19. LEVOFLOXACIN [Concomitant]
     Route: 065
     Dates: start: 20131108, end: 20131124
  20. ANASTROZOLE [Concomitant]
     Route: 065
     Dates: start: 20140122
  21. PREDNISONE [Concomitant]
     Route: 065
     Dates: start: 20140109
  22. DIOVAN [Concomitant]
     Route: 065
     Dates: start: 201401
  23. LEXOTAN [Concomitant]
     Route: 065
     Dates: start: 2013

REACTIONS (2)
  - Pneumonitis [Recovered/Resolved]
  - Febrile neutropenia [Recovered/Resolved]
